FAERS Safety Report 15727712 (Version 1)
Quarter: 2018Q4

REPORT INFORMATION
  Report Type: Spontaneous
  Country: US (occurrence: US)
  Receive Date: 20181217
  Receipt Date: 20181217
  Transmission Date: 20190205
  Serious: No
  Sender: FDA-Public Use
  Company Number: US-NOVEN PHARMACEUTICALS, INC.-US2018000187

PATIENT

DRUGS (6)
  1. MINIVELLE [Suspect]
     Active Substance: ESTRADIOL
     Indication: HORMONE REPLACEMENT THERAPY
     Dosage: 0.1 MG, 3-4 DAYS
     Route: 062
     Dates: start: 201801
  2. PROGESTERONE. [Concomitant]
     Active Substance: PROGESTERONE
  3. MINIVELLE [Suspect]
     Active Substance: ESTRADIOL
     Dosage: 0.05 MG, UNK
     Route: 062
     Dates: start: 2018, end: 2018
  4. MINIVELLE [Suspect]
     Active Substance: ESTRADIOL
     Dosage: 0.025 MG, 2/WK
     Route: 062
     Dates: start: 2018
  5. VALPRAX [Concomitant]
     Dosage: 500 MG, QD
  6. MINIVELLE [Suspect]
     Active Substance: ESTRADIOL
     Dosage: 0.1 MG, 3-4 DAYS
     Route: 062
     Dates: start: 2018

REACTIONS (11)
  - Drug effect delayed [Unknown]
  - Pigmentation disorder [Not Recovered/Not Resolved]
  - Product quality issue [Unknown]
  - Wrong technique in product usage process [Recovered/Resolved]
  - Product administered at inappropriate site [Not Recovered/Not Resolved]
  - Rash [Unknown]
  - Product adhesion issue [Unknown]
  - Weight increased [Not Recovered/Not Resolved]
  - Product prescribing error [Not Recovered/Not Resolved]
  - Product dose omission [Recovered/Resolved]
  - Incorrect product administration duration [Recovered/Resolved]

NARRATIVE: CASE EVENT DATE: 2018
